FAERS Safety Report 6907802-8 (Version None)
Quarter: 2010Q3

REPORT INFORMATION
  Report Type: 
  Country: None (occurrence: None)
  Receive Date: 20100727
  Receipt Date: 20100722
  Transmission Date: 20110219
  Serious: Yes (Death)
  Sender: FDA-Public Use
  Company Number: US-SANOFI-AVENTIS-2010SA027847

PATIENT
  Age: 57 Year
  Sex: Male

DRUGS (9)
  1. PLAVIX [Suspect]
     Indication: CORONARY ARTERY DISEASE
     Route: 048
     Dates: start: 20091222, end: 20100401
  2. COUMADIN [Concomitant]
     Indication: ATRIAL FIBRILLATION
     Dates: end: 20100401
  3. NEBIVOLOL [Concomitant]
     Indication: HYPERTENSION
     Route: 048
     Dates: end: 20100401
  4. LASIX [Concomitant]
     Route: 048
     Dates: end: 20100401
  5. AMIODARONE HCL [Concomitant]
     Indication: ATRIAL FIBRILLATION
     Route: 048
     Dates: end: 20100401
  6. LISINOPRIL [Concomitant]
     Indication: HYPERTENSION
     Route: 048
     Dates: end: 20100401
  7. ASPIRIN [Concomitant]
     Route: 048
     Dates: end: 20100401
  8. PRILOSEC [Concomitant]
     Route: 048
     Dates: end: 20100401
  9. ZOCOR [Concomitant]
     Route: 048
     Dates: end: 20100401

REACTIONS (2)
  - CARDIAC ARREST [None]
  - TREATMENT NONCOMPLIANCE [None]
